FAERS Safety Report 19405998 (Version 1)
Quarter: 2021Q2

REPORT INFORMATION
  Report Type: Spontaneous
  Country: ES (occurrence: US)
  Receive Date: 20210611
  Receipt Date: 20210611
  Transmission Date: 20210717
  Serious: Yes (Hospitalization)
  Sender: FDA-Public Use
  Company Number: ES-ABBVIE-21K-144-3942582-00

PATIENT
  Age: 83 Year
  Sex: Female

DRUGS (1)
  1. SEVORANE [Suspect]
     Active Substance: SEVOFLURANE
     Indication: PAIN
     Dosage: 1 APLICACION (20 ML) /DIA
     Route: 061
     Dates: start: 20210427, end: 20210506

REACTIONS (3)
  - Aspiration [Unknown]
  - Somnolence [Recovered/Resolved]
  - Wound necrosis [Unknown]

NARRATIVE: CASE EVENT DATE: 20210506
